FAERS Safety Report 4340400-1 (Version None)
Quarter: 2004Q2

REPORT INFORMATION
  Report Type: 
  Country: None (occurrence: None)
  Receive Date: 20040414
  Receipt Date: 20040407
  Transmission Date: 20050107
  Serious: Yes (Other)
  Sender: FDA-Public Use
  Company Number: AU-JNJFOC-20040401478

PATIENT
  Sex: Male

DRUGS (4)
  1. RISPERDAL CONSTA [Suspect]
     Dosage: 25 MG, INTRAMUSCULAR
     Route: 030
  2. RISPERDAL [Suspect]
     Dosage: 3 MG, IN 1 DAY
  3. OLANZAPINE [Concomitant]
  4. DIAZEPAM [Concomitant]

REACTIONS (1)
  - LOSS OF CONSCIOUSNESS [None]
